FAERS Safety Report 6181058-9 (Version None)
Quarter: 2009Q2

REPORT INFORMATION
  Report Type: 
  Country: None (occurrence: None)
  Receive Date: 20090501
  Receipt Date: 20090501
  Transmission Date: 20091009
  Serious: Yes (Other)
  Sender: FDA-Public Use
  Company Number: None

PATIENT
  Age: 65 Year
  Sex: Female

DRUGS (1)
  1. HIBICLENS [Suspect]
     Indication: PREOPERATIVE CARE
     Dosage: 4 OZ., DAILY, 060

REACTIONS (2)
  - RASH MORBILLIFORM [None]
  - RASH VESICULAR [None]
